FAERS Safety Report 9950298 (Version 1)
Quarter: 2014Q1

REPORT INFORMATION
  Report Type: Spontaneous
  Country: US (occurrence: US)
  Receive Date: 20140304
  Receipt Date: 20140304
  Transmission Date: 20141002
  Serious: No
  Sender: FDA-Public Use
  Company Number: US-ABBVIE-13P-163-1067886-00

PATIENT
  Age: 45 Year
  Sex: Female

DRUGS (2)
  1. HUMIRA [Suspect]
     Indication: INFLAMMATORY BOWEL DISEASE
     Dates: start: 201112, end: 201205
  2. HUMIRA [Suspect]
     Dates: start: 201207, end: 201210

REACTIONS (2)
  - Suicidal ideation [Recovered/Resolved]
  - Rash pustular [Unknown]
